FAERS Safety Report 6454272-2 (Version None)
Quarter: 2009Q4

REPORT INFORMATION
  Report Type: 
  Country: None (occurrence: None)
  Receive Date: 20091124
  Receipt Date: 20091112
  Transmission Date: 20100525
  Serious: Yes (Death, Other)
  Sender: FDA-Public Use
  Company Number: BR-PFIZER INC-2009255107

PATIENT
  Age: 84 Year
  Sex: Female
  Weight: 57.143 kg

DRUGS (1)
  1. NEURONTIN [Suspect]
     Indication: NEUROPATHY PERIPHERAL
     Dosage: 600 MG, UNK
     Route: 048
     Dates: start: 20020101, end: 20070101

REACTIONS (4)
  - AORTIC ANEURYSM [None]
  - INFARCTION [None]
  - OSTEOPOROSIS [None]
  - THROMBOSIS [None]
